FAERS Safety Report 9733753 (Version 2)
Quarter: 2013Q4

REPORT INFORMATION
  Report Type: Spontaneous
  Country: JP (occurrence: JP)
  Receive Date: 20131205
  Receipt Date: 20131213
  Transmission Date: 20140711
  Serious: Yes (Other)
  Sender: FDA-Public Use
  Company Number: JP-CELGENEUS-087-21880-13114864

PATIENT
  Age: 69 Year
  Sex: Male

DRUGS (4)
  1. REVLIMID [Suspect]
     Indication: PLASMA CELL MYELOMA
     Dosage: 5 MILLIGRAM
     Route: 048
     Dates: start: 20131106, end: 20131122
  2. RISPERIDONE [Suspect]
     Indication: INSOMNIA
     Dosage: .5 MILLIGRAM
     Route: 048
  3. RISPERIDONE [Suspect]
     Indication: BONE PAIN
  4. BIAXIN [Concomitant]
     Indication: PRODUCT USED FOR UNKNOWN INDICATION
     Route: 065
     Dates: start: 20131106

REACTIONS (2)
  - Parkinsonism [Unknown]
  - Dysphonia [Unknown]
